FAERS Safety Report 9903938 (Version 1)
Quarter: 2014Q1

REPORT INFORMATION
  Report Type: Report from Study
  Country: US (occurrence: US)
  Receive Date: 20140218
  Receipt Date: 20140218
  Transmission Date: 20141002
  Serious: Yes (Hospitalization)
  Sender: FDA-Public Use
  Company Number: US-ROCHE-1345185

PATIENT
  Age: 86 Year
  Sex: Female

DRUGS (2)
  1. AVASTIN [Suspect]
     Indication: AGE-RELATED MACULAR DEGENERATION
     Route: 065
  2. NUCYNTA [Concomitant]

REACTIONS (3)
  - Small intestinal obstruction [Unknown]
  - Visual acuity reduced [Unknown]
  - Off label use [Unknown]
